FAERS Safety Report 19655858 (Version 1)
Quarter: 2021Q3

REPORT INFORMATION
  Report Type: Spontaneous
  Country: US (occurrence: US)
  Receive Date: 20210802
  Receipt Date: 20210802
  Transmission Date: 20211014
  Serious: No
  Sender: FDA-Public Use
  Company Number: None

PATIENT

DRUGS (2)
  1. PITOCIN [Suspect]
     Active Substance: OXYTOCIN
     Dosage: ?          OTHER STRENGTH:36 UNITS;?
  2. CALDOLOR [Suspect]
     Active Substance: IBUPROFEN

REACTIONS (2)
  - Incorrect product formulation administered [None]
  - Product preparation issue [None]
